FAERS Safety Report 6543926-5 (Version None)
Quarter: 2010Q1

REPORT INFORMATION
  Report Type: 
  Country: None (occurrence: None)
  Receive Date: 20100119
  Receipt Date: 20100119
  Transmission Date: 20100710
  Serious: No
  Sender: FDA-Public Use
  Company Number: None

PATIENT
  Age: 50 Year
  Sex: Female
  Weight: 45.3597 kg

DRUGS (1)
  1. TYLENOL (CAPLET) [Suspect]
     Indication: SPONDYLITIS
     Dosage: 2 TABS PO
     Route: 048
     Dates: start: 20100111, end: 20100115

REACTIONS (5)
  - DIZZINESS [None]
  - INFLUENZA [None]
  - PRODUCT QUALITY ISSUE [None]
  - URINARY TRACT INFECTION [None]
  - URINE ABNORMALITY [None]
